FAERS Safety Report 23179004 (Version 1)
Quarter: 2023Q4

REPORT INFORMATION
  Report Type: Spontaneous
  Country: PL (occurrence: PL)
  Receive Date: 20231113
  Receipt Date: 20231113
  Transmission Date: 20240109
  Serious: Yes (Other)
  Sender: FDA-Public Use
  Company Number: PL-002147023-NVSC2023PL230114

PATIENT
  Age: 68 Year
  Sex: Male

DRUGS (2)
  1. BOSUTINIB [Suspect]
     Active Substance: BOSUTINIB
     Indication: Chronic myeloid leukaemia
     Dosage: 500 MG, QD
     Route: 065
     Dates: start: 20230713
  2. IMATINIB [Suspect]
     Active Substance: IMATINIB
     Indication: Chronic myeloid leukaemia
     Dosage: UNK
     Route: 065
     Dates: start: 20211223

REACTIONS (11)
  - Diarrhoea [Unknown]
  - Pancytopenia [Unknown]
  - Weight increased [Unknown]
  - Blood uric acid increased [Recovering/Resolving]
  - Laboratory test abnormal [Unknown]
  - Blood creatinine increased [Recovering/Resolving]
  - Anaemia [Unknown]
  - Drug intolerance [Unknown]
  - Oedema peripheral [Unknown]
  - Pruritus [Unknown]
  - Hypoglycaemia [Unknown]
